FAERS Safety Report 4996145-8 (Version None)
Quarter: 2006Q2

REPORT INFORMATION
  Report Type: 
  Country: None (occurrence: None)
  Receive Date: 20060504
  Receipt Date: 20060424
  Transmission Date: 20061013
  Serious: Yes (Death, Life-Threatening, Hospitalization, Other)
  Sender: FDA-Public Use
  Company Number: 2006-03-1739

PATIENT
  Age: 62 Year
  Sex: Male

DRUGS (6)
  1. TEMODAL [Suspect]
     Indication: OLIGODENDROGLIOMA
     Dosage: 205 MG QD ORAL
     Route: 048
     Dates: start: 20060303, end: 20060307
  2. CARMUSTINE [Suspect]
     Indication: OLIGODENDROGLIOMA
     Dosage: 280 MG INTRAVENOUS
     Route: 042
     Dates: start: 20060303, end: 20060303
  3. VALPROATE SODIUM [Suspect]
  4. FORTUM [Concomitant]
  5. MEDROL [Concomitant]
  6. MANNITOL [Concomitant]

REACTIONS (27)
  - ASPERGILLOSIS [None]
  - BONE MARROW FAILURE [None]
  - BRONCHOPULMONARY ASPERGILLOSIS [None]
  - CONDITION AGGRAVATED [None]
  - COORDINATION ABNORMAL [None]
  - CYTOMEGALOVIRUS INFECTION [None]
  - DRUG INTERACTION [None]
  - EMBOLISM [None]
  - FEBRILE NEUTROPENIA [None]
  - HAEMATOTOXICITY [None]
  - HAEMODIALYSIS [None]
  - HEMIPARESIS [None]
  - HYPERSENSITIVITY [None]
  - IMMUNE SYSTEM DISORDER [None]
  - INFECTION IN AN IMMUNOCOMPROMISED HOST [None]
  - LACTIC ACIDOSIS [None]
  - LUNG INFECTION [None]
  - LUNG NEOPLASM [None]
  - MULTI-ORGAN FAILURE [None]
  - ORGAN FAILURE [None]
  - PANCYTOPENIA [None]
  - PATHOGEN RESISTANCE [None]
  - PNEUMOCOCCAL INFECTION [None]
  - RESPIRATORY DISTRESS [None]
  - RESPIRATORY FAILURE [None]
  - SEPTIC SHOCK [None]
  - URINARY TRACT INFECTION PSEUDOMONAL [None]
